FAERS Safety Report 13640038 (Version 1)
Quarter: 2017Q2

REPORT INFORMATION
  Report Type: Spontaneous
  Country: US (occurrence: US)
  Receive Date: 20170609
  Receipt Date: 20170609
  Transmission Date: 20170830
  Serious: Yes (Other)
  Sender: FDA-Public Use
  Company Number: US-ROCHE-1149919

PATIENT
  Sex: Female

DRUGS (2)
  1. KLONOPIN [Suspect]
     Active Substance: CLONAZEPAM
     Indication: ANXIETY
     Route: 065
  2. FIORINAL [Concomitant]
     Active Substance: ASPIRIN\BUTALBITAL\CAFFEINE

REACTIONS (15)
  - Suicidal ideation [Unknown]
  - Alopecia [Unknown]
  - Conversion disorder [Unknown]
  - Crying [Unknown]
  - Ventricular extrasystoles [Unknown]
  - Cough [Unknown]
  - Insomnia [Unknown]
  - Migraine [Unknown]
  - Dyspnoea [Unknown]
  - Drug ineffective [Unknown]
  - Heart rate irregular [Unknown]
  - Chest discomfort [Unknown]
  - Malaise [Unknown]
  - Irritability [Unknown]
  - Neck surgery [Unknown]
